FAERS Safety Report 9491254 (Version 1)
Quarter: 2013Q3

REPORT INFORMATION
  Report Type: Spontaneous
  Country: US (occurrence: US)
  Receive Date: 20130830
  Receipt Date: 20130830
  Transmission Date: 20140515
  Serious: Yes (Other)
  Sender: FDA-Public Use
  Company Number: US-PFIZER INC-2013247301

PATIENT
  Age: 82 Year
  Sex: Female
  Weight: 75.3 kg

DRUGS (5)
  1. PREMARIN [Suspect]
     Indication: VULVOVAGINAL DRYNESS
     Dosage: 1 G, 2X/WEEK
     Route: 067
     Dates: start: 2004
  2. PREMARIN [Suspect]
     Dosage: 0.5 G, 2X/WEEK
     Route: 067
  3. PREMARIN [Suspect]
     Dosage: UNK, 2X/WEEK
     Route: 067
  4. HYDROCHLOROTHIAZIDE [Concomitant]
     Dosage: UNK
  5. METOPROLOL ER [Concomitant]
     Dosage: UNK

REACTIONS (1)
  - Cystitis [Unknown]
